FAERS Safety Report 6611755-X (Version None)
Quarter: 2010Q1

REPORT INFORMATION
  Report Type: 
  Country: None (occurrence: None)
  Receive Date: 20100303
  Receipt Date: 20100225
  Transmission Date: 20100710
  Serious: Yes (Death)
  Sender: FDA-Public Use
  Company Number: US-JNJFOC-20100100052

PATIENT
  Sex: Male
  Weight: 87.09 kg

DRUGS (3)
  1. CONCERTA [Suspect]
     Indication: ATTENTION DEFICIT/HYPERACTIVITY DISORDER
     Dosage: ONE YEAR PRIOR TO DEATH PATIENT WAS ON LOW DOSE OF OROS METHYLPHENIDATE HYDROCHLORIDE
     Route: 048
  2. MARIJUANA [Suspect]
     Indication: DRUG USE FOR UNKNOWN INDICATION
     Route: 065
  3. TRAZODONE HCL [Concomitant]
     Indication: HYPERSOMNIA
     Dosage: AS NECESSARY
     Route: 065

REACTIONS (3)
  - COMPLETED SUICIDE [None]
  - DEPRESSION [None]
  - PSYCHOTIC DISORDER [None]
